FAERS Safety Report 9247279 (Version 3)
Quarter: 2013Q2

REPORT INFORMATION
  Report Type: Spontaneous
  Country: US (occurrence: US)
  Receive Date: 20130423
  Receipt Date: 20130510
  Transmission Date: 20140414
  Serious: No
  Sender: FDA-Public Use
  Company Number: US-009507513-1303USA003170

PATIENT
  Age: 61 Year
  Sex: Female
  Weight: 58.96 kg

DRUGS (5)
  1. MIRALAX [Suspect]
     Indication: CONSTIPATION
     Dosage: 17 G, PRN
     Route: 048
     Dates: start: 201301
  2. HYDROCORTISONE [Concomitant]
     Indication: PRODUCT USED FOR UNKNOWN INDICATION
     Dosage: 20 MG, QAM
     Route: 048
  3. HYDROCORTISONE [Concomitant]
     Dosage: 10 MG, QPM
     Route: 048
  4. HYDROCORTISONE [Concomitant]
     Dosage: 100 MG, TID
     Route: 048
  5. LORTAB [Concomitant]
     Indication: PRODUCT USED FOR UNKNOWN INDICATION
     Dosage: UNK
     Route: 048

REACTIONS (8)
  - Addison^s disease [Unknown]
  - Condition aggravated [Recovered/Resolved]
  - Pain [Recovered/Resolved]
  - Abdominal pain upper [Recovered/Resolved]
  - Dyspnoea [Unknown]
  - Pharyngeal disorder [Unknown]
  - Cough [Unknown]
  - Malaise [Unknown]
